FAERS Safety Report 13905199 (Version 2)
Quarter: 2017Q3

REPORT INFORMATION
  Report Type: Spontaneous
  Country: JP (occurrence: JP)
  Receive Date: 20170825
  Receipt Date: 20170922
  Transmission Date: 20171127
  Serious: Yes (Other)
  Sender: FDA-Public Use
  Company Number: JP-ORION CORPORATION ORION PHARMA-ENT 2017-0135

PATIENT
  Age: 62 Year
  Sex: Female

DRUGS (2)
  1. COMTAN [Suspect]
     Active Substance: ENTACAPONE
     Indication: PARKINSON^S DISEASE
     Route: 048
     Dates: start: 20141106
  2. MADOPAR [Concomitant]
     Active Substance: BENSERAZIDE HYDROCHLORIDE\LEVODOPA
     Route: 065
     Dates: start: 20141106

REACTIONS (3)
  - Wrong technique in product usage process [Unknown]
  - Intentional product misuse [Unknown]
  - Sudden onset of sleep [Recovering/Resolving]

NARRATIVE: CASE EVENT DATE: 20160512
